FAERS Safety Report 23029740 (Version 1)
Quarter: 2023Q4

REPORT INFORMATION
  Report Type: Report from Study
  Country: US (occurrence: US)
  Receive Date: 20231004
  Receipt Date: 20231004
  Transmission Date: 20240109
  Serious: Yes (Other)
  Sender: FDA-Public Use
  Company Number: US-ABBVIE-5434165

PATIENT
  Sex: Female

DRUGS (1)
  1. RINVOQ [Suspect]
     Active Substance: UPADACITINIB
     Indication: Product used for unknown indication
     Route: 048
     Dates: start: 20230712

REACTIONS (4)
  - Hysterectomy [Unknown]
  - Spinal pain [Not Recovered/Not Resolved]
  - Feeling cold [Unknown]
  - Ulcer [Unknown]

NARRATIVE: CASE EVENT DATE: 20230101
